FAERS Safety Report 13747338 (Version 2)
Quarter: 2017Q3

REPORT INFORMATION
  Report Type: Spontaneous
  Country: JP (occurrence: JP)
  Receive Date: 20170712
  Receipt Date: 20170825
  Transmission Date: 20171127
  Serious: Yes (Other)
  Sender: FDA-Public Use
  Company Number: JP-MYLANLABS-2017M1040347

PATIENT

DRUGS (2)
  1. CLARITH [Suspect]
     Active Substance: CLARITHROMYCIN
     Indication: VIRAL UPPER RESPIRATORY TRACT INFECTION
     Route: 048
  2. DISOPYRAMIDE [Suspect]
     Active Substance: DISOPYRAMIDE
     Indication: ARRHYTHMIA SUPRAVENTRICULAR
     Route: 048

REACTIONS (1)
  - Hyperinsulinaemic hypoglycaemia [Recovering/Resolving]
